FAERS Safety Report 10767639 (Version 1)
Quarter: 2015Q1

REPORT INFORMATION
  Report Type: Spontaneous
  Country: US (occurrence: US)
  Receive Date: 20150205
  Receipt Date: 20150205
  Transmission Date: 20150721
  Serious: Yes (Death)
  Sender: FDA-Public Use
  Company Number: US-PERRIGO-15US001273

PATIENT
  Age: 28 Year
  Sex: Female

DRUGS (1)
  1. ACETAMINOPHEN 650MG ER 544 [Suspect]
     Active Substance: ACETAMINOPHEN
     Indication: PRODUCT USED FOR UNKNOWN INDICATION
     Dosage: UNKNOWN,UNKNOWN
     Route: 048

REACTIONS (1)
  - Death [Fatal]
